FAERS Safety Report 11140069 (Version 1)
Quarter: 2015Q2

REPORT INFORMATION
  Report Type: Spontaneous
  Country: US (occurrence: US)
  Receive Date: 20150527
  Receipt Date: 20150527
  Transmission Date: 20150821
  Serious: No
  Sender: FDA-Public Use
  Company Number: US-ENDO PHARMACEUTICALS INC.-SPLN20140121

PATIENT
  Age: 10 Year

DRUGS (1)
  1. SUPPRELIN LA [Suspect]
     Active Substance: HISTRELIN ACETATE
     Indication: PRECOCIOUS PUBERTY
     Route: 065
     Dates: start: 20141204, end: 20150204

REACTIONS (6)
  - Peripheral swelling [Recovered/Resolved]
  - Skin irritation [Recovered/Resolved]
  - Pain in extremity [Unknown]
  - Pruritus [Recovered/Resolved]
  - Dermatitis contact [Recovered/Resolved]
  - Rash [Recovered/Resolved]

NARRATIVE: CASE EVENT DATE: 201412
